FAERS Safety Report 4832178-X (Version None)
Quarter: 2005Q4

REPORT INFORMATION
  Report Type: 
  Country: None (occurrence: None)
  Receive Date: 20051114
  Receipt Date: 20051028
  Transmission Date: 20060501
  Serious: Yes (Death)
  Sender: FDA-Public Use
  Company Number: 200512710GDS

PATIENT
  Age: 81 Year
  Sex: Female

DRUGS (2)
  1. ADALAT [Suspect]
     Indication: HYPERTENSION
     Dosage: 30 MG, QD, ORAL
     Route: 048
     Dates: start: 20050818
  2. ZHEN JU JIANG YA PIAN (A KIND OF CHINESE  PATENT MEDICINE) [Concomitant]

REACTIONS (1)
  - SUDDEN DEATH [None]
